FAERS Safety Report 5977657-7 (Version None)
Quarter: 2008Q4

REPORT INFORMATION
  Report Type: 
  Country: None (occurrence: None)
  Receive Date: 20081203
  Receipt Date: 20081126
  Transmission Date: 20090506
  Serious: Yes (Hospitalization)
  Sender: FDA-Public Use
  Company Number: FR-ASTRAZENECA-2008CG01744

PATIENT
  Age: 27663 Day
  Sex: Male

DRUGS (4)
  1. ZESTORETIC [Suspect]
     Dosage: 20 + 12.5 MG DAILY
     Route: 048
     Dates: end: 20080308
  2. CELECTOL [Suspect]
     Route: 048
     Dates: end: 20080308
  3. KARDEGIC [Concomitant]
     Route: 048
     Dates: end: 20080308
  4. ALLOPURINOL [Concomitant]
     Route: 048

REACTIONS (8)
  - ATRIAL FIBRILLATION [None]
  - BRADYCARDIA [None]
  - DISORIENTATION [None]
  - HYPONATRAEMIA [None]
  - ISCHAEMIA [None]
  - ORTHOSTATIC HYPOTENSION [None]
  - SYNCOPE [None]
  - VENTRICULAR EXTRASYSTOLES [None]
